FAERS Safety Report 7437454-2 (Version None)
Quarter: 2011Q2

REPORT INFORMATION
  Report Type: 
  Country: None (occurrence: None)
  Receive Date: 20110426
  Receipt Date: 20100628
  Transmission Date: 20111010
  Serious: Yes (Other)
  Sender: FDA-Public Use
  Company Number: US-PFIZER INC-2010081162

PATIENT
  Sex: Female
  Weight: 54.422 kg

DRUGS (1)
  1. ESTRING [Suspect]
     Dosage: 2 MG, UNK
     Dates: start: 20090501, end: 20100502

REACTIONS (2)
  - VAGINAL DISCHARGE [None]
  - VAGINAL HAEMORRHAGE [None]
